FAERS Safety Report 13291633 (Version 1)
Quarter: 2017Q1

REPORT INFORMATION
  Report Type: Spontaneous
  Country: US (occurrence: US)
  Receive Date: 20170303
  Receipt Date: 20170303
  Transmission Date: 20170428
  Serious: No
  Sender: FDA-Public Use
  Company Number: US-DEPOMED, INC.-US-2016DEP010144

PATIENT

DRUGS (1)
  1. GRALISE [Suspect]
     Active Substance: GABAPENTIN
     Indication: FIBROMYALGIA
     Dosage: 300 MG, QD
     Route: 048
     Dates: start: 20160524

REACTIONS (6)
  - Nausea [Recovering/Resolving]
  - Chills [Not Recovered/Not Resolved]
  - Product use issue [Not Recovered/Not Resolved]
  - Vertigo [Recovering/Resolving]
  - Fall [Unknown]
  - Hyperhidrosis [Not Recovered/Not Resolved]

NARRATIVE: CASE EVENT DATE: 201605
